FAERS Safety Report 11852992 (Version 1)
Quarter: 2015Q4

REPORT INFORMATION
  Report Type: Report from Study
  Country: PK (occurrence: PK)
  Receive Date: 20151218
  Receipt Date: 20151218
  Transmission Date: 20160305
  Serious: Yes (Death, Other)
  Sender: FDA-Public Use
  Company Number: PHHY2015PK165940

PATIENT
  Age: 64 Year
  Sex: Female

DRUGS (1)
  1. ACLASTA [Suspect]
     Active Substance: ZOLEDRONIC ACID
     Indication: OSTEOPOROSIS
     Dosage: 1 DF(5MG/100ML), Q12MO
     Route: 042
     Dates: start: 20140908, end: 20140908

REACTIONS (2)
  - Acute myocardial infarction [Fatal]
  - Venous thrombosis limb [Unknown]
